FAERS Safety Report 13115624 (Version 2)
Quarter: 2017Q3

REPORT INFORMATION
  Report Type: Report from Study
  Country: None (occurrence: CA)
  Receive Date: 20170114
  Receipt Date: 20170915
  Transmission Date: 20171127
  Serious: Yes (Disabling)
  Sender: FDA-Public Use
  Company Number: CA-ABBVIE-17P-028-1838914-00

PATIENT
  Sex: Female

DRUGS (1)
  1. HUMIRA [Suspect]
     Active Substance: ADALIMUMAB
     Indication: CROHN^S DISEASE
     Route: 058
     Dates: start: 20160613

REACTIONS (6)
  - Back pain [Recovered/Resolved]
  - Blood magnesium decreased [Unknown]
  - Balance disorder [Recovered/Resolved]
  - Hypothyroidism [Unknown]
  - Anxiety [Unknown]
  - Depression [Unknown]
